FAERS Safety Report 20551858 (Version 2)
Quarter: 2022Q1

REPORT INFORMATION
  Report Type: Spontaneous
  Country: US (occurrence: None)
  Receive Date: 20220304
  Receipt Date: 20220324
  Transmission Date: 20220424
  Serious: No
  Sender: FDA-Public Use
  Company Number: 2022A072584

PATIENT
  Age: 25893 Day
  Sex: Male
  Weight: 121.6 kg

DRUGS (1)
  1. BYDUREON BCISE [Suspect]
     Active Substance: EXENATIDE
     Route: 058

REACTIONS (6)
  - Injection site pain [Unknown]
  - Injection site haemorrhage [Unknown]
  - Device delivery system issue [Unknown]
  - Wrong technique in device usage process [Unknown]
  - Needle issue [Unknown]
  - Device leakage [Unknown]

NARRATIVE: CASE EVENT DATE: 20220211
